FAERS Safety Report 11252296 (Version 4)
Quarter: 2015Q4

REPORT INFORMATION
  Report Type: Spontaneous
  Country: US (occurrence: US)
  Receive Date: 20150708
  Receipt Date: 20151209
  Transmission Date: 20160304
  Serious: Yes (Life-Threatening, Congenital Anomaly, Other)
  Sender: FDA-Public Use
  Company Number: US-ELI_LILLY_AND_COMPANY-US201310008481

PATIENT
  Age: 0 Day

DRUGS (2)
  1. PROZAC [Suspect]
     Active Substance: FLUOXETINE HYDROCHLORIDE
     Indication: PRODUCT USED FOR UNKNOWN INDICATION
     Dosage: 20 MG, QD
     Route: 064
  2. PROZAC [Suspect]
     Active Substance: FLUOXETINE HYDROCHLORIDE
     Dosage: 20 MG, QD
     Route: 063

REACTIONS (15)
  - Patent ductus arteriosus [Recovered/Resolved]
  - Persistent foetal circulation [Recovered/Resolved]
  - Drug withdrawal syndrome neonatal [Recovered/Resolved]
  - Neonatal respiratory depression [Recovered/Resolved]
  - Anaemia [Recovered/Resolved]
  - Sepsis neonatal [Recovered/Resolved]
  - Attention deficit/hyperactivity disorder [Unknown]
  - Feeding disorder of infancy or early childhood [Recovered/Resolved]
  - Convulsion neonatal [Recovered/Resolved]
  - Umbilical cord around neck [Recovered/Resolved]
  - Agitation neonatal [Recovered/Resolved]
  - Foetal exposure during pregnancy [Recovered/Resolved]
  - Exposure during breast feeding [Unknown]
  - Gross motor delay [Unknown]
  - Irritability [Recovered/Resolved]

NARRATIVE: CASE EVENT DATE: 20060630
